FAERS Safety Report 6122846-4 (Version None)
Quarter: 2009Q1

REPORT INFORMATION
  Report Type: 
  Country: None (occurrence: None)
  Receive Date: 20090318
  Receipt Date: 20090310
  Transmission Date: 20090719
  Serious: Yes (Other)
  Sender: FDA-Public Use
  Company Number: B0535211A

PATIENT
  Age: 50 Year
  Sex: Male

DRUGS (3)
  1. SERETIDE [Suspect]
     Indication: ASTHMA
     Dosage: 2PUFF TWICE PER DAY
     Route: 055
     Dates: start: 20060101
  2. VENTOLIN [Suspect]
     Indication: ASTHMA
     Dosage: 100MCG AS REQUIRED
     Route: 055
     Dates: start: 19980101
  3. SIMVASTATIN [Concomitant]
     Route: 048

REACTIONS (3)
  - ASTHMA [None]
  - COUGH [None]
  - WHEEZING [None]
